FAERS Safety Report 7313140-4 (Version None)
Quarter: 2011Q1

REPORT INFORMATION
  Report Type: 
  Country: None (occurrence: None)
  Receive Date: 20110215
  Receipt Date: 20110215
  Transmission Date: 20110831
  Serious: Yes (Hospitalization, Other)
  Sender: FDA-Public Use
  Company Number: None

PATIENT
  Sex: Female

DRUGS (1)
  1. LENTE ILETIN II (PORK) [Suspect]

REACTIONS (11)
  - WRONG DRUG ADMINISTERED [None]
  - CEREBROVASCULAR ACCIDENT [None]
  - UNEVALUABLE EVENT [None]
  - IMPAIRED DRIVING ABILITY [None]
  - COORDINATION ABNORMAL [None]
  - DYSGRAPHIA [None]
  - GAIT DISTURBANCE [None]
  - SPEECH DISORDER [None]
  - CONVULSION [None]
  - BLOOD INSULIN [None]
  - MEDICATION ERROR [None]
